FAERS Safety Report 23024037 (Version 1)
Quarter: 2023Q4

REPORT INFORMATION
  Report Type: Spontaneous
  Country: US (occurrence: US)
  Receive Date: 20231003
  Receipt Date: 20231003
  Transmission Date: 20240109
  Serious: No
  Sender: FDA-Public Use
  Company Number: US-drreddys-LIT/USA/23/0176720

PATIENT
  Age: 23 Year
  Sex: Male

DRUGS (11)
  1. VALPROIC ACID [Suspect]
     Active Substance: VALPROIC ACID
     Indication: Isodicentric chromosome 15 syndrome
  2. LAMOTRIGINE [Suspect]
     Active Substance: LAMOTRIGINE
     Indication: Isodicentric chromosome 15 syndrome
  3. ATOMOXETINE HYDROCHLORIDE [Suspect]
     Active Substance: ATOMOXETINE HYDROCHLORIDE
     Indication: Isodicentric chromosome 15 syndrome
  4. CITALOPRAM [Suspect]
     Active Substance: CITALOPRAM HYDROBROMIDE
     Indication: Isodicentric chromosome 15 syndrome
  5. FLUOXETINE [Suspect]
     Active Substance: FLUOXETINE HYDROCHLORIDE
     Indication: Isodicentric chromosome 15 syndrome
  6. DEXMETHYLPHENIDATE [Suspect]
     Active Substance: DEXMETHYLPHENIDATE
     Indication: Isodicentric chromosome 15 syndrome
  7. AMPHETAMINE\DEXTROAMPHETAMINE [Suspect]
     Active Substance: AMPHETAMINE\DEXTROAMPHETAMINE
     Indication: Isodicentric chromosome 15 syndrome
  8. MIRTAZAPINE [Suspect]
     Active Substance: MIRTAZAPINE
     Indication: Isodicentric chromosome 15 syndrome
  9. GUANFACINE [Suspect]
     Active Substance: GUANFACINE
     Indication: Isodicentric chromosome 15 syndrome
  10. ARIPIPRAZOLE [Suspect]
     Active Substance: ARIPIPRAZOLE
     Indication: Isodicentric chromosome 15 syndrome
  11. OXCARBAZEPINE [Suspect]
     Active Substance: OXCARBAZEPINE
     Indication: Isodicentric chromosome 15 syndrome

REACTIONS (3)
  - Euphoric mood [Unknown]
  - Tic [Recovering/Resolving]
  - Drug ineffective for unapproved indication [Unknown]
